FAERS Safety Report 7828864-X (Version None)
Quarter: 2011Q4

REPORT INFORMATION
  Report Type: 
  Country: None (occurrence: None)
  Receive Date: 20111020
  Receipt Date: 20111012
  Transmission Date: 20120403
  Serious: Yes (Other)
  Sender: FDA-Public Use
  Company Number: PHHY2011JP91273

PATIENT
  Age: 30 Year
  Sex: Female

DRUGS (2)
  1. ASPIRIN [Suspect]
     Dosage: 500 MG, UNK
  2. WHEAT [Interacting]
     Dosage: 100 G, UNK

REACTIONS (6)
  - ANAPHYLACTIC REACTION [None]
  - URTICARIA [None]
  - DYSPNOEA [None]
  - THROAT TIGHTNESS [None]
  - HYPOTENSION [None]
  - DRUG INTERACTION [None]
